FAERS Safety Report 24549683 (Version 1)
Quarter: 2024Q4

REPORT INFORMATION
  Report Type: Spontaneous
  Country: US (occurrence: None)
  Receive Date: 20241024
  Receipt Date: 20241024
  Transmission Date: 20250114
  Serious: Yes (Hospitalization)
  Sender: Public
  Company Number: None

PATIENT
  Age: 23 Month
  Sex: Female

DRUGS (2)
  1. TRACLEER [Suspect]
     Active Substance: BOSENTAN
     Indication: Pulmonary arterial hypertension
     Dosage: FREQUENCY : TWICE A DAY;?
     Dates: start: 202308
  2. GATTEX [Concomitant]
     Active Substance: TEDUGLUTIDE\WATER

REACTIONS (1)
  - Influenza [None]

NARRATIVE: CASE EVENT DATE: 20241014
